FAERS Safety Report 4822242-3 (Version None)
Quarter: 2005Q4

REPORT INFORMATION
  Report Type: 
  Country: None (occurrence: None)
  Receive Date: 20051103
  Receipt Date: 20051017
  Transmission Date: 20060501
  Serious: Yes (Other)
  Sender: FDA-Public Use
  Company Number: USA031253554

PATIENT
  Age: 71 Year
  Sex: Female

DRUGS (4)
  1. HUMULIN N [Suspect]
     Indication: DIABETES MELLITUS
     Dosage: UNK
     Route: 065
     Dates: end: 20010101
  2. HUMULIN R [Suspect]
     Indication: DIABETES MELLITUS
     Dosage: UNK
     Route: 065
     Dates: start: 20010101, end: 20010101
  3. ILETIN II [Suspect]
     Dosage: UNK
     Route: 065
  4. ILETIN I [Suspect]
     Dosage: UNK
     Route: 065

REACTIONS (8)
  - ANTI-INSULIN ANTIBODY POSITIVE [None]
  - DIALYSIS [None]
  - DRUG HYPERSENSITIVITY [None]
  - DRUG INEFFECTIVE [None]
  - HYPERTENSION [None]
  - PRURITUS GENERALISED [None]
  - RENAL DISORDER [None]
  - RENAL FAILURE CHRONIC [None]
